FAERS Safety Report 8227393-1 (Version None)
Quarter: 2012Q1

REPORT INFORMATION
  Report Type: 
  Country: None (occurrence: None)
  Receive Date: 20120322
  Receipt Date: 20120316
  Transmission Date: 20120608
  Serious: Yes (Other)
  Sender: FDA-Public Use
  Company Number: US-BAYER-2012-026131

PATIENT
  Age: 73 Year
  Sex: Male

DRUGS (2)
  1. MORPHINE [Concomitant]
     Indication: PAIN
     Dosage: UNK
     Dates: start: 20120101
  2. NEXAVAR [Suspect]
     Indication: THYROID CANCER
     Dosage: 200 MG, BID
     Dates: start: 20120311, end: 20120315

REACTIONS (4)
  - PAIN IN EXTREMITY [None]
  - CONFUSIONAL STATE [None]
  - NAUSEA [None]
  - PARAESTHESIA [None]
